FAERS Safety Report 12080737 (Version 2)
Quarter: 2016Q1

REPORT INFORMATION
  Report Type: Report from Study
  Country: BR (occurrence: BR)
  Receive Date: 20160216
  Receipt Date: 20160314
  Transmission Date: 20160526
  Serious: Yes (Other)
  Sender: FDA-Public Use
  Company Number: BR-BRISTOL-MYERS SQUIBB COMPANY-14844450

PATIENT
  Age: 26 Year
  Sex: Female
  Weight: 85 kg

DRUGS (6)
  1. ACETAZOLAMIDE. [Concomitant]
     Active Substance: ACETAZOLAMIDE
     Indication: PRODUCT USED FOR UNKNOWN INDICATION
     Dosage: UNK
     Route: 048
  2. ABATACEPT [Suspect]
     Active Substance: ABATACEPT
     Indication: SYSTEMIC LUPUS ERYTHEMATOSUS
     Dosage: UNK
     Route: 065
  3. CAPTOPRIL. [Suspect]
     Active Substance: CAPTOPRIL
     Indication: SYSTEMIC LUPUS ERYTHEMATOSUS
     Dosage: 25 MG, INTERMITTENT
     Route: 048
     Dates: start: 20081031
  4. EXTERNAL-PREDNISONE [Suspect]
     Active Substance: PREDNISONE
     Indication: SYSTEMIC LUPUS ERYTHEMATOSUS
     Dosage: 40 MG, QD
     Route: 048
     Dates: start: 20081029
  5. EXTERNAL-MYCOPHENOLATE MOFETIL [Suspect]
     Active Substance: MYCOPHENOLATE MOFETIL
     Indication: SYSTEMIC LUPUS ERYTHEMATOSUS
     Route: 065
  6. CHLOROQUINE PHOSPHATE. [Concomitant]
     Active Substance: CHLOROQUINE PHOSPHATE
     Indication: SYSTEMIC LUPUS ERYTHEMATOSUS
     Dosage: 750 MG, QD
     Route: 048
     Dates: start: 20081031

REACTIONS (5)
  - Live birth [Unknown]
  - Pregnancy with contraceptive device [Recovered/Resolved]
  - Hypertension [Unknown]
  - Caesarean section [Unknown]
  - Breast feeding [Unknown]

NARRATIVE: CASE EVENT DATE: 20090926
